FAERS Safety Report 10244750 (Version 1)
Quarter: 2014Q1

REPORT INFORMATION
  Report Type: Spontaneous
  Country: US (occurrence: None)
  Receive Date: 20140306
  Receipt Date: 20140306
  Transmission Date: 20141002
  Serious: Yes (Disabling, Other)
  Sender: FDA-Public Use
  Company Number: 163-21880-13033414

PATIENT
  Age: 75 Year
  Sex: Male
  Weight: 75.3 kg

DRUGS (6)
  1. REVLIMID (LENALIDOMIDE) (25 MILLIGRAM, CAPSULES) [Suspect]
     Indication: PLASMA CELL MYELOMA
     Route: 048
     Dates: start: 201011
  2. ATORVASTATIN CALCIUM (ATORVASTATIN CALCIUM) (UNKNOWN) [Concomitant]
  3. METFORMIN HCL (METFORMIN HYDROCHLORIDE) (UNKNOWN) [Concomitant]
  4. CARVEDILOL (CARVEDILOL) (UNKNOWN) [Concomitant]
  5. ASA (ACETYLSALICYLIC ACID) (UNKNOWN) [Concomitant]
  6. VITAMIN B (VITAMIN B) (UNKNOWN) [Concomitant]

REACTIONS (2)
  - Drug hypersensitivity [None]
  - Neuropathy peripheral [None]
